FAERS Safety Report 8960932 (Version 1)
Quarter: 2012Q4

REPORT INFORMATION
  Report Type: 
  Country: IN (occurrence: US)
  Receive Date: 20121213
  Receipt Date: 20121213
  Transmission Date: 20130627
  Serious: No
  Sender: FDA-Public Use
  Company Number: US-BAYER-2012-130332

PATIENT
  Sex: Female

DRUGS (1)
  1. ESTRADIOL [Suspect]
     Dosage: 0.1 mg/24hr, CONT
     Route: 062

REACTIONS (3)
  - Polymenorrhoea [None]
  - Pruritus [None]
  - Drug ineffective [None]
